FAERS Safety Report 6328757-3 (Version None)
Quarter: 2009Q3

REPORT INFORMATION
  Report Type: 
  Country: None (occurrence: None)
  Receive Date: 20090825
  Receipt Date: 20090825
  Transmission Date: 20100115
  Serious: Yes (Death)
  Sender: FDA-Public Use
  Company Number: None

PATIENT
  Age: 42 Year
  Sex: Male
  Weight: 40 kg

DRUGS (5)
  1. LAMIVUDINE/STAVUDINE [Suspect]
     Indication: HIV INFECTION
     Dosage: 300MG/60 MG QD ORAL
     Route: 048
     Dates: start: 20090626, end: 20090724
  2. EFAVIRENZ [Suspect]
     Indication: HIV INFECTION
     Dosage: 600MG QD ORAL
     Route: 048
     Dates: start: 20090626, end: 20090724
  3. COTRIM [Concomitant]
  4. FLUCONAZOLE [Concomitant]
  5. STREPTOMYCIN [Concomitant]

REACTIONS (7)
  - ALANINE AMINOTRANSFERASE INCREASED [None]
  - ASPARTATE AMINOTRANSFERASE INCREASED [None]
  - COMA [None]
  - DISEASE PROGRESSION [None]
  - HYPONATRAEMIA [None]
  - LUNG DISORDER [None]
  - MENINGITIS [None]
